FAERS Safety Report 9726347 (Version 5)
Quarter: 2014Q4

REPORT INFORMATION
  Report Type: Spontaneous
  Country: US (occurrence: US)
  Receive Date: 20131203
  Receipt Date: 20141125
  Transmission Date: 20150529
  Serious: Yes (Other)
  Sender: FDA-Public Use
  Company Number: US-ABBVIE-13P-163-1174362-00

PATIENT
  Sex: Male
  Weight: 92.16 kg

DRUGS (4)
  1. DEPAKOTE [Suspect]
     Active Substance: DIVALPROEX SODIUM
     Indication: SEIZURE
     Route: 065
     Dates: start: 2011, end: 2013
  2. KEPPRA [Concomitant]
     Active Substance: LEVETIRACETAM
     Indication: SEIZURE
  3. DILANTIN [Concomitant]
     Active Substance: PHENYTOIN
     Indication: SEIZURE
     Dates: start: 2009, end: 201001
  4. LORTAB [Concomitant]
     Active Substance: ACETAMINOPHEN\HYDROCODONE BITARTRATE
     Indication: PAIN

REACTIONS (16)
  - Mobility decreased [Not Recovered/Not Resolved]
  - Spinal fracture [Unknown]
  - Device related infection [Unknown]
  - Feeling hot [Recovered/Resolved]
  - Spinal fracture [Recovered/Resolved]
  - Limb asymmetry [Not Recovered/Not Resolved]
  - Gait disturbance [Not Recovered/Not Resolved]
  - Osteoporosis [Unknown]
  - Hip fracture [Recovered/Resolved]
  - Mental disorder [Recovered/Resolved]
  - Aggression [Recovered/Resolved]
  - Osteoporosis [Recovering/Resolving]
  - Urine odour abnormal [Recovered/Resolved]
  - Hypercalciuria [Recovered/Resolved]
  - Anger [Recovered/Resolved]
  - Bone decalcification [Not Recovered/Not Resolved]

NARRATIVE: CASE EVENT DATE: 2011
